FAERS Safety Report 14329395 (Version 3)
Quarter: 2018Q1

REPORT INFORMATION
  Report Type: Spontaneous
  Country: BR (occurrence: BR)
  Receive Date: 20171227
  Receipt Date: 20180115
  Transmission Date: 20180509
  Serious: Yes (Other)
  Sender: FDA-Public Use
  Company Number: BR-SA-2017SA260719

PATIENT
  Age: 47 Year
  Sex: Female
  Weight: 52 kg

DRUGS (3)
  1. DIOVAN AMLOFIX [Concomitant]
     Route: 048
     Dates: start: 201001
  2. LANTUS [Suspect]
     Active Substance: INSULIN GLARGINE
     Dosage: DOSE IS 10 IU IN MORNING AND 10 IU IN NIGHT
     Route: 058
     Dates: start: 20171218, end: 20171218
  3. LANTUS [Suspect]
     Active Substance: INSULIN GLARGINE
     Dosage: DOSE IS 10 IU IN MORNING AND 10 IU IN NIGHT
     Route: 058
     Dates: start: 200901

REACTIONS (5)
  - Menopause [Not Recovered/Not Resolved]
  - Eye haemorrhage [Recovered/Resolved with Sequelae]
  - Drug ineffective [Unknown]
  - Off label use [Unknown]
  - Hyperglycaemia [Recovered/Resolved with Sequelae]

NARRATIVE: CASE EVENT DATE: 200901
